FAERS Safety Report 9773079 (Version 1)
Quarter: 2013Q4

REPORT INFORMATION
  Report Type: Spontaneous
  Country: MX (occurrence: MX)
  Receive Date: 20131219
  Receipt Date: 20131219
  Transmission Date: 20140711
  Serious: Yes (Death)
  Sender: FDA-Public Use
  Company Number: MX-PFIZER INC-2013363702

PATIENT
  Age: 79 Year
  Sex: Male
  Weight: 45 kg

DRUGS (3)
  1. NORVAS [Suspect]
     Indication: HYPERTENSION
     Dosage: 2 DF, 2X/DAY
     Route: 048
     Dates: start: 201310, end: 201310
  2. CARZILASA [Concomitant]
     Indication: OXYGEN CONSUMPTION
     Dosage: 1.5 ML, 3X/DAY
     Route: 048
     Dates: start: 201310, end: 201310
  3. VIDAZA [Concomitant]
     Indication: OXYGEN CONSUMPTION
     Dosage: 2 ML, 1X/DAY
     Route: 048
     Dates: start: 201310, end: 201310

REACTIONS (1)
  - Death [Fatal]
